FAERS Safety Report 21646757 (Version 1)
Quarter: 2022Q4

REPORT INFORMATION
  Report Type: Report from Study
  Country: DE (occurrence: DE)
  Receive Date: 20221127
  Receipt Date: 20221127
  Transmission Date: 20230113
  Serious: Yes (Hospitalization)
  Sender: FDA-Public Use
  Company Number: None

PATIENT
  Sex: Female

DRUGS (11)
  1. METHOTREXATE [Suspect]
     Active Substance: METHOTREXATE
     Indication: Rheumatoid arthritis
     Dosage: 10 MILLIGRAM, END DATE: ASKU
     Route: 065
     Dates: start: 20151222
  2. METHOTREXATE [Suspect]
     Active Substance: METHOTREXATE
     Dosage: 20 MILLIGRAM, END DATE: ASKU
     Route: 065
     Dates: start: 20160609
  3. METHOTREXATE [Suspect]
     Active Substance: METHOTREXATE
     Dosage: 15 MILLIGRAM,  END DATE: ASKU
     Route: 065
     Dates: start: 20131205
  4. METHOTREXATE [Suspect]
     Active Substance: METHOTREXATE
     Dosage: 20 MILLIGRAM, END DATE: ASKU
     Route: 065
     Dates: start: 20170909
  5. METHOTREXATE [Suspect]
     Active Substance: METHOTREXATE
     Dosage: 15 MILLIGRAM, END DATE: ASKU
     Route: 065
     Dates: start: 20140320
  6. METHOTREXATE [Suspect]
     Active Substance: METHOTREXATE
     Dosage: 10 MILLIGRAM, END DATE: ASKU
     Route: 065
     Dates: start: 20150616
  7. METHOTREXATE [Suspect]
     Active Substance: METHOTREXATE
     Dosage: 15 MILLIGRAM, END DATE: ASKU
     Route: 065
     Dates: start: 20140623
  8. METHOTREXATE [Suspect]
     Active Substance: METHOTREXATE
     Dosage: 15 MILLIGRAM, END DATE: ASKU
     Route: 065
     Dates: start: 20141204
  9. LEFLUNOMIDE [Suspect]
     Active Substance: LEFLUNOMIDE
     Indication: Rheumatoid arthritis
     Dosage: 10 MILLIGRAM, END DATE: ASKU
     Route: 065
     Dates: start: 20151222
  10. TOCILIZUMAB [Concomitant]
     Active Substance: TOCILIZUMAB
     Indication: Product used for unknown indication
     Dosage: 162 MILLIGRAM, DURATION 7 MONTHS
     Route: 065
     Dates: start: 201801, end: 201808
  11. ORENCIA [Concomitant]
     Active Substance: ABATACEPT
     Indication: Product used for unknown indication
     Dosage: 125 MILLIGRAM, DURATION 3 MONTHS
     Route: 065
     Dates: start: 201503, end: 201506

REACTIONS (2)
  - Rhythm idioventricular [Recovered/Resolved]
  - Muscle spasms [Unknown]

NARRATIVE: CASE EVENT DATE: 20161115
